FAERS Safety Report 10028651 (Version 3)
Quarter: 2014Q2

REPORT INFORMATION
  Report Type: Report from Study
  Country: CN (occurrence: CN)
  Receive Date: 20140321
  Receipt Date: 20140415
  Transmission Date: 20141212
  Serious: Yes (Hospitalization)
  Sender: FDA-Public Use
  Company Number: CN-TEVA-469869USA

PATIENT
  Age: 72 Year
  Sex: Male
  Weight: 71.5 kg

DRUGS (6)
  1. BENDAMUSTINE [Suspect]
     Indication: MANTLE CELL LYMPHOMA
     Route: 042
     Dates: start: 20131216
  2. BENDAMUSTINE [Suspect]
     Route: 042
     Dates: start: 20140212
  3. RITUXIMAB [Suspect]
     Indication: MANTLE CELL LYMPHOMA
     Route: 042
     Dates: start: 20131216
  4. RITUXIMAB [Suspect]
     Route: 042
     Dates: start: 20140211
  5. IBRUTINIB/PLACEBO [Suspect]
     Indication: MANTLE CELL LYMPHOMA
     Dosage: 560 MILLIGRAM DAILY;
     Route: 048
     Dates: start: 20131216, end: 20140310
  6. IBRUTINIB/PLACEBO [Suspect]
     Route: 048
     Dates: start: 20140310

REACTIONS (1)
  - Respiratory failure [Recovered/Resolved]
